FAERS Safety Report 6285937-3 (Version None)
Quarter: 2009Q3

REPORT INFORMATION
  Report Type: 
  Country: None (occurrence: None)
  Receive Date: 20090728
  Receipt Date: 20090720
  Transmission Date: 20100115
  Serious: Yes (Disabling, Other)
  Sender: FDA-Public Use
  Company Number: BR-BAYER-200913938LA

PATIENT
  Age: 47 Year
  Sex: Female
  Weight: 83 kg

DRUGS (10)
  1. BETAFERON [Suspect]
     Indication: MULTIPLE SCLEROSIS
     Dosage: BETAJECT
     Route: 058
     Dates: start: 20070901
  2. APRAZ [Concomitant]
     Indication: DEPRESSION
     Dosage: TOTAL DAILY DOSE: 1.5 DF
     Route: 048
     Dates: start: 20080101
  3. APRAZ [Concomitant]
     Dosage: HALF TABLET IN THE MORNING AND 1 TABLET AT NIGHT
     Route: 065
  4. CYMBALTA [Concomitant]
     Indication: DEPRESSION
     Route: 048
     Dates: start: 20080101
  5. AMATO [Concomitant]
     Indication: HEADACHE
     Route: 065
     Dates: start: 20090601
  6. IMURAN [Concomitant]
     Indication: DRUG USE FOR UNKNOWN INDICATION
     Dosage: 3 TABLETS AFTER LUNCH
     Route: 065
     Dates: start: 20090601
  7. LOSARTAN POTASSIUM [Concomitant]
     Indication: HYPERTENSION
     Route: 065
  8. PURAN T4 [Concomitant]
     Indication: HYPOTHYROIDISM
     Route: 065
  9. AMYTRIL [Concomitant]
     Indication: ANTIDEPRESSANT THERAPY
     Route: 065
  10. ROHYPNOL [Concomitant]
     Indication: ANTIDEPRESSANT THERAPY
     Route: 065

REACTIONS (17)
  - ABASIA [None]
  - CHOLELITHIASIS [None]
  - DYSPNOEA EXERTIONAL [None]
  - FATIGUE [None]
  - GAIT DISTURBANCE [None]
  - HEPATIC STEATOSIS [None]
  - HYPERAESTHESIA [None]
  - HYPERTENSION [None]
  - HYPOTHYROIDISM [None]
  - INJECTION SITE NODULE [None]
  - IRON DEFICIENCY ANAEMIA [None]
  - MULTIPLE SCLEROSIS [None]
  - MULTIPLE SCLEROSIS RELAPSE [None]
  - MUSCULAR WEAKNESS [None]
  - NEURITIS [None]
  - PAIN OF SKIN [None]
  - VOMITING [None]
